FAERS Safety Report 5475488-8 (Version None)
Quarter: 2007Q3

REPORT INFORMATION
  Report Type: 
  Country: None (occurrence: None)
  Receive Date: 20070914
  Receipt Date: 20070530
  Transmission Date: 20080115
  Serious: Yes (Other)
  Sender: FDA-Public Use
  Company Number: 07-132

PATIENT
  Age: 75 Year
  Sex: Male

DRUGS (1)
  1. ALEVE [Suspect]
     Dosage: DAILY, ORAL, ^FOR A LONG TIME^
     Route: 048

REACTIONS (1)
  - GASTROINTESTINAL HAEMORRHAGE [None]
